FAERS Safety Report 7047471-2 (Version None)
Quarter: 2010Q4

REPORT INFORMATION
  Report Type: 
  Country: None (occurrence: None)
  Receive Date: 20101015
  Receipt Date: 20101004
  Transmission Date: 20110411
  Serious: Yes (Hospitalization, Other)
  Sender: FDA-Public Use
  Company Number: US-ACTELION-A-NJ2010-39938

PATIENT
  Sex: Female
  Weight: 65.76 kg

DRUGS (6)
  1. BOSENTAN TABLET 125 MG US [Suspect]
     Indication: PULMONARY ARTERIAL HYPERTENSION
     Dosage: 125 MG, BID
     Route: 048
     Dates: start: 20070401, end: 20100921
  2. BOSENTAN TABLET 125 MG US [Suspect]
     Dosage: 62.5 MG, BID
     Route: 048
     Dates: start: 20070301, end: 20070401
  3. TADALAFIL [Concomitant]
  4. WARFARIN SODIUM [Concomitant]
  5. PREDNISONE [Concomitant]
  6. LASIX [Concomitant]

REACTIONS (4)
  - CARDIAC FLUTTER [None]
  - DIZZINESS [None]
  - OEDEMA PERIPHERAL [None]
  - PALPITATIONS [None]
